FAERS Safety Report 4437664-2 (Version None)
Quarter: 2004Q3

REPORT INFORMATION
  Report Type: 
  Country: None (occurrence: None)
  Receive Date: 20040831
  Receipt Date: 20040810
  Transmission Date: 20050211
  Serious: Yes (Hospitalization, Other)
  Sender: FDA-Public Use
  Company Number: PHBS2004ES10666

PATIENT
  Age: 32 Year
  Sex: Male

DRUGS (3)
  1. CYCLOSPORINE [Suspect]
     Indication: RENAL TRANSPLANT
     Route: 065
  2. AZATHIOPRINE [Suspect]
  3. PREDNISONE [Suspect]

REACTIONS (35)
  - ARTERIOVENOUS FISTULA THROMBOSIS [None]
  - BILE DUCT STENOSIS [None]
  - BILE DUCT STONE [None]
  - BILIARY DILATATION [None]
  - CATARACT [None]
  - CHOLANGITIS [None]
  - CHOLECYSTECTOMY [None]
  - CHOLECYSTITIS ACUTE [None]
  - ENDOSCOPIC RETROGRADE CHOLANGIOPANCREATOGRAPHY [None]
  - EYE OPERATION [None]
  - FOOD INTOLERANCE [None]
  - GASTRIC OPERATION [None]
  - GASTRITIS [None]
  - GASTRITIS EROSIVE [None]
  - GASTROINTESTINAL DISORDER [None]
  - GOUTY ARTHRITIS [None]
  - HAEMATEMESIS [None]
  - HAEMORRHAGE [None]
  - HERPES ZOSTER [None]
  - HIP ARTHROPLASTY [None]
  - INTESTINAL HAEMORRHAGE [None]
  - INTRA-ABDOMINAL HAEMORRHAGE [None]
  - JAUNDICE CHOLESTATIC [None]
  - LAPAROTOMY [None]
  - LOCALISED OSTEOARTHRITIS [None]
  - LUNG INFECTION PSEUDOMONAL [None]
  - MELAENA [None]
  - OSTEONECROSIS [None]
  - PAIN IN EXTREMITY [None]
  - PANCREATIC PSEUDOCYST [None]
  - PANCREATITIS ACUTE [None]
  - PANCREATITIS CHRONIC [None]
  - PEPTIC ULCER [None]
  - PERITONEAL ABSCESS [None]
  - UPPER GASTROINTESTINAL HAEMORRHAGE [None]
